FAERS Safety Report 8451246-7 (Version None)
Quarter: 2012Q2

REPORT INFORMATION
  Report Type: 
  Country: None (occurrence: None)
  Receive Date: 20120620
  Receipt Date: 20120315
  Transmission Date: 20120825
  Serious: No
  Sender: FDA-Public Use
  Company Number: US-VERTEX PHARMACEUTICALS INC.-AE-2012-001598

PATIENT
  Sex: Male
  Weight: 79.904 kg

DRUGS (8)
  1. INCIVEK [Suspect]
     Indication: HEPATITIS C
     Route: 048
     Dates: start: 20111221, end: 20120313
  2. TOPROLOL [Concomitant]
     Route: 048
  3. NORVASC [Concomitant]
     Route: 048
  4. COPEGUS [Concomitant]
     Indication: HEPATITIS C
     Route: 048
     Dates: start: 20111221
  5. PEGASYS [Concomitant]
     Indication: HEPATITIS C
     Route: 058
     Dates: start: 20111221
  6. XANAX [Concomitant]
  7. MULTI-VITAMIN [Concomitant]
  8. LOVAZA [Concomitant]

REACTIONS (5)
  - ASTHENIA [None]
  - HAEMOGLOBIN DECREASED [None]
  - PLATELET COUNT DECREASED [None]
  - PRURITUS [None]
  - FEELING ABNORMAL [None]
